FAERS Safety Report 13078786 (Version 2)
Quarter: 2017Q1

REPORT INFORMATION
  Report Type: Spontaneous
  Country: DE (occurrence: DE)
  Receive Date: 20170102
  Receipt Date: 20170103
  Transmission Date: 20170428
  Serious: Yes (Other)
  Sender: FDA-Public Use
  Company Number: DE-EXELIXIS-CABO-16007858

PATIENT
  Age: 36 Year
  Sex: Male

DRUGS (1)
  1. COMETRIQ [Suspect]
     Active Substance: CABOZANTINIB S-MALATE
     Indication: MEDULLARY THYROID CANCER
     Dosage: 60 MG, QD
     Route: 048
     Dates: start: 201602, end: 20161208

REACTIONS (6)
  - Personality change [Unknown]
  - Aggression [Recovered/Resolved]
  - Weight decreased [Unknown]
  - Fatigue [Unknown]
  - Irritability [Unknown]
  - Dysgeusia [Unknown]

NARRATIVE: CASE EVENT DATE: 201609
